FAERS Safety Report 9269848 (Version 1)
Quarter: 2013Q2

REPORT INFORMATION
  Report Type: Spontaneous
  Country: IT (occurrence: IT)
  Receive Date: 20130503
  Receipt Date: 20130503
  Transmission Date: 20140414
  Serious: Yes (Hospitalization)
  Sender: FDA-Public Use
  Company Number: IT-SANOFI-AVENTIS-2013SA043499

PATIENT
  Age: 66 Year
  Sex: Male

DRUGS (12)
  1. LASIX [Suspect]
     Indication: PRODUCT USED FOR UNKNOWN INDICATION
     Dosage: 500 MG TAB
     Route: 065
     Dates: start: 20120908, end: 20130410
  2. ZAROXOLYN [Suspect]
     Indication: PRODUCT USED FOR UNKNOWN INDICATION
     Dosage: 5 MG TAB
     Route: 065
     Dates: start: 20120924, end: 20130410
  3. METFORMIN HYDROCHLORIDE [Concomitant]
  4. OMEPRAZOLE [Concomitant]
  5. CETIRIZINE [Concomitant]
  6. SINTROM [Concomitant]
  7. CRESTOR [Concomitant]
  8. CORLENTOR [Concomitant]
  9. AMARYL [Concomitant]
  10. VENITRIN [Concomitant]
     Dosage: STRENGTH: 10 MG/ 24H
  11. APROVEL [Concomitant]
  12. LUVION [Concomitant]
     Dosage: STRENGTH: 100 MG

REACTIONS (6)
  - Disorientation [Recovering/Resolving]
  - Dizziness [Recovering/Resolving]
  - Decreased appetite [Recovering/Resolving]
  - Nausea [Recovering/Resolving]
  - Hypokalaemia [Recovering/Resolving]
  - Renal impairment [Recovering/Resolving]
